FAERS Safety Report 6716207-4 (Version None)
Quarter: 2010Q2

REPORT INFORMATION
  Report Type: 
  Country: None (occurrence: None)
  Receive Date: 20100507
  Receipt Date: 20100428
  Transmission Date: 20101027
  Serious: Yes (Hospitalization, Other)
  Sender: FDA-Public Use
  Company Number: US-SANOFI-AVENTIS-2010SA020561

PATIENT
  Age: 52 Year
  Sex: Male
  Weight: 98 kg

DRUGS (12)
  1. LANTUS [Suspect]
     Dosage: DOSE:70 UNIT(S)
     Route: 058
     Dates: start: 20070101
  2. OPTICLICK [Suspect]
     Dates: start: 20070101
  3. NOVOLOG [Concomitant]
     Dosage: DOSE:30 UNIT(S)
     Dates: start: 20071001
  4. GLYBURIDE [Concomitant]
     Dates: start: 19980101
  5. DIOVAN [Concomitant]
     Dosage: 1 DAILY
  6. DOXAZOSIN MESYLATE [Concomitant]
  7. LIPITOR [Concomitant]
  8. FEXOFENADINE [Concomitant]
  9. ASPIRIN [Concomitant]
  10. OSTEO BI-FLEX [Concomitant]
     Dosage: 1 PILL TWICE DAILY
  11. VITAMIN C [Concomitant]
  12. VITAMIN E [Concomitant]

REACTIONS (2)
  - HYPERKALAEMIA [None]
  - STAPHYLOCOCCAL INFECTION [None]
